FAERS Safety Report 4742475-4 (Version None)
Quarter: 2005Q3

REPORT INFORMATION
  Report Type: 
  Country: None (occurrence: None)
  Receive Date: 20050810
  Receipt Date: 20050810
  Transmission Date: 20060218
  Serious: Yes (Hospitalization)
  Sender: FDA-Public Use
  Company Number: None

PATIENT
  Age: 78 Year
  Sex: Male
  Weight: 76.6579 kg

DRUGS (14)
  1. HYDRALAZINE 100 MG BID  RENEWED 5/12/05-05/19/05 [Suspect]
  2. CLONIDINE [Suspect]
  3. TERAZOSIN 10 MG BID RENEWED 1/10/05-5/19/05 [Suspect]
  4. METOPROLOL 25 MG BID RENEWED 1/10/05-05192005 [Suspect]
  5. ENALAPRIL 5 MG DAILY RENEWED  4/10/05-5/19/05 [Suspect]
  6. . [Concomitant]
  7. . [Concomitant]
  8. . [Concomitant]
  9. . [Concomitant]
  10. . [Concomitant]
  11. . [Concomitant]
  12. . [Concomitant]
  13. . [Concomitant]
  14. . [Concomitant]

REACTIONS (2)
  - CONFUSIONAL STATE [None]
  - HYPOTENSION [None]
